FAERS Safety Report 11230260 (Version 1)
Quarter: 2015Q2

REPORT INFORMATION
  Report Type: Spontaneous
  Country: AU (occurrence: None)
  Receive Date: 20150629
  Receipt Date: 20150629
  Transmission Date: 20150821
  Serious: Yes (Life-Threatening, Hospitalization)
  Sender: FDA-Public Use
  Company Number: AU-2015VAL000415

PATIENT
  Age: 90 Year
  Sex: Female
  Weight: 52 kg

DRUGS (4)
  1. METOPROLOL TARTRATE (METOPROLOL TARTRATE) UNKNOWN [Suspect]
     Active Substance: METOPROLOL TARTRATE
     Indication: CARDIAC FAILURE CONGESTIVE
     Route: 048
     Dates: start: 201503
  2. METOPROLOL TARTRATE (METOPROLOL TARTRATE) UNKNOWN [Suspect]
     Active Substance: METOPROLOL TARTRATE
     Indication: ATRIAL FIBRILLATION
     Route: 048
     Dates: start: 201503
  3. VALSARTAN / DIOVAN / VAL489 / CGP 48933 [Suspect]
     Active Substance: VALSARTAN
     Indication: CARDIAC FAILURE CHRONIC
     Route: 048
  4. CLCZ696D [Suspect]
     Active Substance: SACUBITRIL
     Indication: CARDIAC FAILURE CHRONIC
     Dosage: CODE NOT BROKEN
     Dates: start: 20150304

REACTIONS (13)
  - Dyspnoea [None]
  - Cardiac failure [None]
  - Abdominal pain [None]
  - Bile duct stone [None]
  - Vomiting [None]
  - Pyrexia [None]
  - Chills [None]
  - Blood bilirubin increased [None]
  - Cholangitis [None]
  - Cholelithiasis [None]
  - Cough [None]
  - Chest discomfort [None]
  - Blood creatinine increased [None]

NARRATIVE: CASE EVENT DATE: 20150603
